FAERS Safety Report 4358792-6 (Version None)
Quarter: 2004Q2

REPORT INFORMATION
  Report Type: 
  Country: None (occurrence: None)
  Receive Date: 20040511
  Receipt Date: 20040427
  Transmission Date: 20050107
  Serious: Yes (Other)
  Sender: FDA-Public Use
  Company Number: TO3-USA-02357-01

PATIENT
  Age: 90 Year
  Sex: Male
  Weight: 58.0604 kg

DRUGS (9)
  1. MEMANTINE (OPEN LABEL, PHASE B) (MEMANTINE) [Suspect]
     Indication: DEMENTIA ALZHEIMER'S TYPE
     Dosage: 20 MG QD; PO
     Route: 048
     Dates: start: 20021204
  2. MEMANTINE (UNBLINDED, PHASE A) (MEMANTINE) [Suspect]
     Indication: DEMENTIA ALZHEIMER'S TYPE
     Dosage: 20 MG QHS; PO
     Route: 048
     Dates: start: 20021106, end: 20021203
  3. FINASTERIDE [Concomitant]
  4. DILTIAZEM [Concomitant]
  5. PRAVACHOL [Concomitant]
  6. BEXTRA [Concomitant]
  7. VITAMIN B COMPLEX CAP [Concomitant]
  8. LEVOXYL [Concomitant]
  9. TYLENOL W/ CODEINE NO. 3 [Concomitant]

REACTIONS (8)
  - ACTINIC KERATOSIS [None]
  - CARDIAC FAILURE CONGESTIVE [None]
  - HAEMATOCRIT DECREASED [None]
  - HAEMOGLOBIN DECREASED [None]
  - LYMPHOMA [None]
  - PLEURAL EFFUSION [None]
  - SEBORRHOEIC KERATOSIS [None]
  - SQUAMOUS CELL CARCINOMA OF SKIN [None]
